FAERS Safety Report 4749286-4 (Version None)
Quarter: 2005Q3

REPORT INFORMATION
  Report Type: 
  Country: None (occurrence: None)
  Receive Date: 20050812
  Receipt Date: 20050516
  Transmission Date: 20060218
  Serious: Yes (Other)
  Sender: FDA-Public Use
  Company Number: 405001

PATIENT
  Age: 46 Year
  Sex: Female

DRUGS (2)
  1. PEGASYS [Suspect]
     Dates: start: 20041112, end: 20050503
  2. COPEGUS [Suspect]
     Dosage: ORAL
     Route: 048
     Dates: start: 20041112, end: 20050503

REACTIONS (4)
  - CHILLS [None]
  - DYSKINESIA [None]
  - PAIN [None]
  - WHITE BLOOD CELL COUNT DECREASED [None]
